FAERS Safety Report 14125561 (Version 1)
Quarter: 2017Q4

REPORT INFORMATION
  Report Type: Spontaneous
  Country: US (occurrence: US)
  Receive Date: 20171025
  Receipt Date: 20171025
  Transmission Date: 20180321
  Serious: Yes (Other)
  Sender: FDA-Public Use
  Company Number: US-JNJFOC-20171026932

PATIENT
  Age: 65 Year
  Sex: Female

DRUGS (3)
  1. CANAGLIFLOZIN [Suspect]
     Active Substance: CANAGLIFLOZIN
     Indication: PRODUCT USED FOR UNKNOWN INDICATION
     Dosage: STOPPED 1 DAY PRIOR TO SURGERY
     Route: 065
  2. DULAGLUTIDE. [Concomitant]
     Active Substance: DULAGLUTIDE
     Dosage: STOPPED 1 WEEK PRIOR TO THE PROCEDURE
     Route: 065
  3. METFORMIN [Concomitant]
     Active Substance: METFORMIN HYDROCHLORIDE
     Dosage: STOPPED 1 DAY PRIOR TO SURGERY
     Route: 065

REACTIONS (2)
  - Ketoacidosis [Unknown]
  - Metabolic acidosis [Unknown]
